FAERS Safety Report 16261819 (Version 1)
Quarter: 2019Q2

REPORT INFORMATION
  Report Type: Spontaneous
  Country: US (occurrence: US)
  Receive Date: 20190501
  Receipt Date: 20190501
  Transmission Date: 20190711
  Serious: Yes (Life-Threatening)
  Sender: FDA-Public Use
  Company Number: US-FRESENIUS KABI-FK201905067

PATIENT
  Age: 3 Year

DRUGS (1)
  1. VECURONIUM (MANUFACTURER UNKNOWN) [Suspect]
     Active Substance: VECURONIUM BROMIDE
     Indication: PRODUCT USED FOR UNKNOWN INDICATION
     Route: 042

REACTIONS (4)
  - Physical product label issue [Recovered/Resolved]
  - Wrong product administered [Recovered/Resolved]
  - Respiratory arrest [Recovered/Resolved]
  - Hypotonia [Recovered/Resolved]
